FAERS Safety Report 10161231 (Version 2)
Quarter: 2014Q2

REPORT INFORMATION
  Report Type: Report from Study
  Country: CA (occurrence: CA)
  Receive Date: 20140508
  Receipt Date: 20140508
  Transmission Date: 20141212
  Serious: Yes (Death, Hospitalization)
  Sender: FDA-Public Use
  Company Number: PHHY2012CA121028

PATIENT
  Age: 46 Year
  Sex: Male

DRUGS (1)
  1. ZOMETA [Suspect]
     Indication: CARCINOID TUMOUR
     Dosage: 4 MG, EVERY 4 WEEKS
     Route: 042
     Dates: start: 20120711, end: 20140424

REACTIONS (5)
  - Death [Fatal]
  - Back pain [Not Recovered/Not Resolved]
  - Haemoglobin decreased [Unknown]
  - Wrong technique in drug usage process [Unknown]
  - Infusion site induration [Unknown]
